FAERS Safety Report 24309375 (Version 5)
Quarter: 2025Q2

REPORT INFORMATION
  Report Type: Report from Study
  Country: JP (occurrence: JP)
  Receive Date: 20240911
  Receipt Date: 20250619
  Transmission Date: 20250716
  Serious: Yes (Other)
  Sender: ABBVIE
  Company Number: JP-TAKEDA-2024TJP013040

PATIENT
  Age: 67 Year
  Sex: Male

DRUGS (12)
  1. LEUPROLIDE ACETATE [Suspect]
     Active Substance: LEUPROLIDE ACETATE
     Indication: Bulbospinal muscular atrophy congenital
     Dosage: 11.25 MILLIGRAM, Q3MONTHS
     Route: 058
     Dates: start: 20240509, end: 20240801
  2. PREDONINE [Concomitant]
     Active Substance: PREDNISOLONE
     Indication: Glycogen storage disease type II
     Dosage: 30 MILLIGRAM, QD
     Route: 048
     Dates: start: 20240813
  3. PREDONINE [Concomitant]
     Active Substance: PREDNISOLONE
     Indication: Glycogen storage disease type II
     Route: 065
     Dates: end: 20241115
  4. NEXVIAZYME [Concomitant]
     Active Substance: AVALGLUCOSIDASE ALFA-NGPT
     Indication: Glycogen storage disease type II
     Route: 041
  5. FEXOFENADINE HYDROCHLORIDE [Concomitant]
     Active Substance: FEXOFENADINE HYDROCHLORIDE
     Indication: Glycogen storage disease type II
     Dosage: 60 MILLIGRAM, BID
     Route: 048
     Dates: start: 20240802
  6. FAMOTIDINE [Concomitant]
     Active Substance: FAMOTIDINE
     Indication: Glycogen storage disease type II
     Dosage: 10 MILLIGRAM, BID
     Route: 048
     Dates: start: 20240813
  7. FAMOTIDINE [Concomitant]
     Active Substance: FAMOTIDINE
     Indication: Glycogen storage disease type II
     Route: 065
     Dates: end: 20241115
  8. ACETAMINOPHEN [Concomitant]
     Active Substance: ACETAMINOPHEN
     Indication: Glycogen storage disease type II
     Route: 041
  9. AMLODIPINE [Concomitant]
     Active Substance: AMLODIPINE BESYLATE
     Indication: Hypertension
     Dosage: 2.5 MILLIGRAM, QD
     Route: 048
  10. SOLU-MEDROL [Concomitant]
     Active Substance: METHYLPREDNISOLONE SODIUM SUCCINATE
     Indication: Glycogen storage disease type II
     Route: 041
  11. POLARAMINE [Concomitant]
     Active Substance: DEXCHLORPHENIRAMINE MALEATE
     Indication: Glycogen storage disease type II
     Route: 042
  12. AZILSARTAN KAMEDOXOMIL [Concomitant]
     Active Substance: AZILSARTAN KAMEDOXOMIL
     Indication: Hypertension
     Dosage: 20 MILLIGRAM, QD
     Route: 048

REACTIONS (2)
  - Skin infection [Recovered/Resolved]
  - Skin ulcer [Recovered/Resolved]

NARRATIVE: CASE EVENT DATE: 20240816
